FAERS Safety Report 5233654-0 (Version None)
Quarter: 2007Q1

REPORT INFORMATION
  Report Type: 
  Country: None (occurrence: None)
  Receive Date: 20070208
  Receipt Date: 20070131
  Transmission Date: 20070707
  Serious: Yes (Hospitalization, Disabling)
  Sender: FDA-Public Use
  Company Number: 2007UW01987

PATIENT
  Age: 15 Year
  Sex: Female

DRUGS (7)
  1. SEROQUEL [Suspect]
     Route: 048
     Dates: start: 20060101
  2. SEROQUEL [Suspect]
     Route: 048
  3. SEROQUEL [Suspect]
     Route: 048
     Dates: start: 20070119
  4. LAMICTAL [Concomitant]
  5. CLONIDINE [Concomitant]
  6. LITHIUM CARBONATE [Concomitant]
     Dates: end: 20061101
  7. ABILIFY [Concomitant]
     Dates: end: 20061101

REACTIONS (3)
  - MOOD SWINGS [None]
  - TIC [None]
  - TOURETTE'S DISORDER [None]
